FAERS Safety Report 11095036 (Version 1)
Quarter: 2015Q2

REPORT INFORMATION
  Report Type: Spontaneous
  Country: US (occurrence: US)
  Receive Date: 20150506
  Receipt Date: 20150506
  Transmission Date: 20150821
  Serious: No
  Sender: FDA-Public Use
  Company Number: US-SA-2014SA006136

PATIENT
  Age: 67 Year
  Sex: Male

DRUGS (3)
  1. APIDRA [Suspect]
     Active Substance: INSULIN GLULISINE
     Indication: TYPE 1 DIABETES MELLITUS
     Dosage: FREQUENCY-PUMP DOSE:80 UNIT(S)
     Route: 058
  2. MEDTRONIC MINI MED IMPLANTABLE DEVICE [Concomitant]
  3. APIDRA [Suspect]
     Active Substance: INSULIN GLULISINE
     Indication: TYPE 1 DIABETES MELLITUS
     Dosage: FREQUENCY-PUMP DOSE:80 UNIT(S)
     Route: 058

REACTIONS (5)
  - Product deposit [Unknown]
  - Infusion site mass [Not Recovered/Not Resolved]
  - Induration [Not Recovered/Not Resolved]
  - Pain [Not Recovered/Not Resolved]
  - Blood glucose increased [Not Recovered/Not Resolved]
